FAERS Safety Report 6068389-8 (Version None)
Quarter: 2009Q1

REPORT INFORMATION
  Report Type: 
  Country: None (occurrence: None)
  Receive Date: 20090206
  Receipt Date: 20090127
  Transmission Date: 20090719
  Serious: Yes (Other)
  Sender: FDA-Public Use
  Company Number: US-AMGEN-QUU296411

PATIENT
  Sex: Male
  Weight: 79.5 kg

DRUGS (3)
  1. NEUPOGEN [Suspect]
     Indication: DRUG USE FOR UNKNOWN INDICATION
     Route: 058
     Dates: start: 20080717, end: 20080717
  2. CIPROFLOXACIN HCL [Concomitant]
     Dates: start: 20080716, end: 20080723
  3. AMOXICILLIN + CLAVULANATE POTASSIUM [Concomitant]
     Dates: start: 20080716, end: 20080723

REACTIONS (6)
  - DYSPHAGIA [None]
  - EYE SWELLING [None]
  - HYPERSENSITIVITY [None]
  - LIP SWELLING [None]
  - PRURITUS [None]
  - RASH PRURITIC [None]
